FAERS Safety Report 6373522-4 (Version None)
Quarter: 2009Q3

REPORT INFORMATION
  Report Type: 
  Country: None (occurrence: None)
  Receive Date: 20090924
  Receipt Date: 20090422
  Transmission Date: 20100115
  Serious: No
  Sender: FDA-Public Use
  Company Number: US-ASTRAZENECA-2009UW05720

PATIENT
  Age: 509 Month
  Sex: Male
  Weight: 136.1 kg

DRUGS (4)
  1. SEROQUEL [Suspect]
     Indication: BIPOLAR DISORDER
     Route: 048
  2. SEROQUEL [Suspect]
     Route: 048
     Dates: start: 20090201
  3. XANAX [Concomitant]
     Indication: ANXIETY
     Route: 048
  4. DESYREL [Concomitant]

REACTIONS (9)
  - AGGRESSION [None]
  - ANGER [None]
  - BACK PAIN [None]
  - CONSTIPATION [None]
  - DIZZINESS [None]
  - DRY MOUTH [None]
  - DRY THROAT [None]
  - FATIGUE [None]
  - MUSCULOSKELETAL PAIN [None]
